FAERS Safety Report 17001276 (Version 1)
Quarter: 2019Q4

REPORT INFORMATION
  Report Type: Spontaneous
  Country: GB (occurrence: GB)
  Receive Date: 20191106
  Receipt Date: 20191106
  Transmission Date: 20200122
  Serious: Yes (Hospitalization)
  Sender: FDA-Public Use
  Company Number: GB-BAUSCH-BL-2019-059615

PATIENT
  Age: 53 Year
  Sex: Male

DRUGS (3)
  1. D-PENICILLAMINE [Suspect]
     Active Substance: PENICILLAMINE
     Indication: RHEUMATOID ARTHRITIS
     Route: 065
     Dates: start: 198902
  2. D-PENICILLAMINE [Suspect]
     Active Substance: PENICILLAMINE
     Dosage: REDUCED
     Route: 065
     Dates: start: 1994, end: 199406
  3. D-PENICILLAMINE [Suspect]
     Active Substance: PENICILLAMINE
     Dosage: INCREASED AFTER 6 MONTHS TO 500 MG DAILY
     Route: 065
     Dates: start: 198908

REACTIONS (3)
  - Glomerulonephritis rapidly progressive [Recovering/Resolving]
  - Vasculitis necrotising [Recovering/Resolving]
  - Glomerulonephritis membranous [Recovering/Resolving]

NARRATIVE: CASE EVENT DATE: 1994
